FAERS Safety Report 4369951-0 (Version None)
Quarter: 2004Q2

REPORT INFORMATION
  Report Type: 
  Country: None (occurrence: None)
  Receive Date: 20040527
  Receipt Date: 20040512
  Transmission Date: 20050107
  Serious: Yes (Other)
  Sender: FDA-Public Use
  Company Number: EWC040539288

PATIENT
  Age: 61 Year
  Sex: Female

DRUGS (1)
  1. GEMCITABINE HYDROCHLORIDE-IV (GEMCITABINE) [Suspect]
     Indication: BREAST CANCER METASTATIC
     Dosage: 1200 MG/M2
     Dates: start: 20040210, end: 20040210

REACTIONS (2)
  - EXANTHEM [None]
  - PRURITUS GENERALISED [None]
